FAERS Safety Report 4359573-X (Version None)
Quarter: 2004Q2

REPORT INFORMATION
  Report Type: 
  Country: None (occurrence: None)
  Receive Date: 20040512
  Receipt Date: 20040423
  Transmission Date: 20050107
  Serious: Yes (Other)
  Sender: FDA-Public Use
  Company Number: EWC040438980

PATIENT
  Age: 52 Year
  Sex: Female

DRUGS (4)
  1. XIGRIS [Suspect]
     Indication: SEPSIS
     Dates: start: 20040421, end: 20040423
  2. XIGRIS [Suspect]
     Indication: URINARY TRACT INFECTION
     Dates: start: 20040421, end: 20040423
  3. ANTIBIOTIC [Concomitant]
  4. NORADRENALINE [Concomitant]

REACTIONS (1)
  - PLATELET COUNT DECREASED [None]
